FAERS Safety Report 19651598 (Version 1)
Quarter: 2021Q3

REPORT INFORMATION
  Report Type: Spontaneous
  Country: US (occurrence: US)
  Receive Date: 20210802
  Receipt Date: 20210802
  Transmission Date: 20211014
  Serious: Yes (Death, Hospitalization)
  Sender: FDA-Public Use
  Company Number: None

PATIENT
  Age: 70 Year
  Sex: Female
  Weight: 54.8 kg

DRUGS (9)
  1. CITALOPRAM [Concomitant]
     Active Substance: CITALOPRAM HYDROBROMIDE
  2. METOPROLOL TARTRATE. [Concomitant]
     Active Substance: METOPROLOL TARTRATE
  3. BUDESONIDE. [Concomitant]
     Active Substance: BUDESONIDE
  4. GABAPENTIN. [Concomitant]
     Active Substance: GABAPENTIN
  5. DICYCLOMINE [Concomitant]
     Active Substance: DICYCLOMINE HYDROCHLORIDE
  6. APIXABAN [Concomitant]
     Active Substance: APIXABAN
  7. ELIQUIS [Suspect]
     Active Substance: APIXABAN
  8. ATORVASTATIN [Concomitant]
     Active Substance: ATORVASTATIN
  9. FOLIC ACID. [Concomitant]
     Active Substance: FOLIC ACID

REACTIONS (6)
  - Hypotension [None]
  - Depressed level of consciousness [None]
  - Agonal respiration [None]
  - Diarrhoea [None]
  - Clostridium difficile colitis [None]
  - Melaena [None]

NARRATIVE: CASE EVENT DATE: 20210714
